FAERS Safety Report 6503038-3 (Version None)
Quarter: 2009Q4

REPORT INFORMATION
  Report Type: 
  Country: None (occurrence: None)
  Receive Date: 20091127
  Receipt Date: 20090820
  Transmission Date: 20100525
  Serious: Yes (Other)
  Sender: FDA-Public Use
  Company Number: WAES 0908USA03737

PATIENT
  Sex: Female

DRUGS (1)
  1. FOSAMAX [Suspect]
     Dosage: PO
     Route: 048
     Dates: start: 20030501, end: 20061001

REACTIONS (4)
  - DEVICE FAILURE [None]
  - IMPLANT SITE INFECTION [None]
  - ORAL INFECTION [None]
  - OSTEONECROSIS [None]
